FAERS Safety Report 10095992 (Version 5)
Quarter: 2015Q3

REPORT INFORMATION
  Report Type: Spontaneous
  Country: US (occurrence: US)
  Receive Date: 20140422
  Receipt Date: 20150731
  Transmission Date: 20151125
  Serious: Yes (Hospitalization, Other)
  Sender: FDA-Public Use
  Company Number: US-GLAXOSMITHKLINE-A1069459A

PATIENT
  Age: 63 Year
  Sex: Female

DRUGS (15)
  1. ZOLOFT [Concomitant]
     Active Substance: SERTRALINE HYDROCHLORIDE
  2. FLOVENT [Suspect]
     Active Substance: FLUTICASONE PROPIONATE
     Indication: ASTHMA
     Dosage: INH 220MCG
     Route: 055
     Dates: start: 2005
  3. PRILOSEC [Concomitant]
     Active Substance: OMEPRAZOLE MAGNESIUM
  4. ZOCOR [Concomitant]
     Active Substance: SIMVASTATIN
  5. FLEXERIL [Concomitant]
     Active Substance: CYCLOBENZAPRINE HYDROCHLORIDE
  6. DANTRIUM [Concomitant]
     Active Substance: DANTROLENE SODIUM
  7. ALDACTONE [Concomitant]
     Active Substance: SPIRONOLACTONE
  8. DYAZIDE [Concomitant]
     Active Substance: HYDROCHLOROTHIAZIDE\TRIAMTERENE
  9. ATENOLOL. [Concomitant]
     Active Substance: ATENOLOL
  10. METFORMIN [Concomitant]
     Active Substance: METFORMIN HYDROCHLORIDE
  11. ALLOPURINOL. [Concomitant]
     Active Substance: ALLOPURINOL
  12. MIRAPEX [Concomitant]
     Active Substance: PRAMIPEXOLE DIHYDROCHLORIDE
  13. VENTOLIN [Suspect]
     Active Substance: ALBUTEROL SULFATE
     Indication: ASTHMA
     Dosage: UNKNOWN STRENGTH
     Route: 055
     Dates: start: 2005
  14. CYMBALTA [Concomitant]
     Active Substance: DULOXETINE HYDROCHLORIDE
  15. LASIX [Concomitant]
     Active Substance: FUROSEMIDE

REACTIONS (10)
  - Pain [Unknown]
  - Gout [Unknown]
  - Hospitalisation [Unknown]
  - Knee arthroplasty [Recovered/Resolved]
  - Diabetes mellitus inadequate control [Unknown]
  - Ill-defined disorder [Unknown]
  - Knee operation [Recovered/Resolved]
  - Joint swelling [Unknown]
  - Spinal fusion surgery [Recovered/Resolved]
  - Fall [Recovered/Resolved]

NARRATIVE: CASE EVENT DATE: 201312
